FAERS Safety Report 4308727-7 (Version None)
Quarter: 2004Q1

REPORT INFORMATION
  Report Type: 
  Country: None (occurrence: None)
  Receive Date: 20040227
  Receipt Date: 20040218
  Transmission Date: 20041129
  Serious: Yes (Death)
  Sender: FDA-Public Use
  Company Number: USA-2003-0011315

PATIENT
  Age: 50 Year
  Sex: Male
  Weight: 88.4 kg

DRUGS (7)
  1. MORPHINE SULFATE (SIMILAR TO NDA 19-516)(MORPHINE SULFATE) UNKNOWN [Suspect]
  2. HYDROXYZINE [Suspect]
  3. CARISOPRODOL [Suspect]
  4. NICOTINE [Suspect]
  5. CANNABIS (CANNABIS) [Suspect]
  6. TEMAZEPAM [Suspect]
  7. BUPROPION (AMFEBUTAMONE) [Suspect]

REACTIONS (7)
  - ACCIDENTAL OVERDOSE [None]
  - CEREBRAL HAEMORRHAGE [None]
  - COMA [None]
  - DRUG SCREEN POSITIVE [None]
  - DRUG TOXICITY [None]
  - HYPERTENSIVE HEART DISEASE [None]
  - SOMNOLENCE [None]
